FAERS Safety Report 16294755 (Version 1)
Quarter: 2019Q2

REPORT INFORMATION
  Report Type: Spontaneous
  Country: US (occurrence: US)
  Receive Date: 20190509
  Receipt Date: 20190509
  Transmission Date: 20190711
  Serious: No
  Sender: FDA-Public Use
  Company Number: US-ROCHE-2228564

PATIENT
  Sex: Male

DRUGS (29)
  1. SERTRALINE HCL [Concomitant]
     Active Substance: SERTRALINE HYDROCHLORIDE
  2. JANUVIA [Concomitant]
     Active Substance: SITAGLIPTIN PHOSPHATE
  3. BACLOFEN. [Concomitant]
     Active Substance: BACLOFEN
  4. CEPHALEXIN [CEFALEXIN] [Concomitant]
     Active Substance: CEPHALEXIN
  5. SIMVASTATIN. [Concomitant]
     Active Substance: SIMVASTATIN
  6. AMOXICILLIN. [Concomitant]
     Active Substance: AMOXICILLIN
  7. GABAPENTIN. [Concomitant]
     Active Substance: GABAPENTIN
  8. OMEGA-3 [DOCOSAHEXAENOIC ACID;EICOSAPENTAENOIC ACID] [Concomitant]
     Active Substance: DOCONEXENT\ICOSAPENT
  9. FUROSEMIDE. [Concomitant]
     Active Substance: FUROSEMIDE
  10. AZITHROMYCIN ANHYDROUS. [Concomitant]
     Active Substance: AZITHROMYCIN ANHYDROUS
  11. CIPROFLOXACIN. [Concomitant]
     Active Substance: CIPROFLOXACIN
  12. LANTUS [Concomitant]
     Active Substance: INSULIN GLARGINE
  13. METHYLPREDNISOLONE. [Concomitant]
     Active Substance: METHYLPREDNISOLONE
  14. ESBRIET [Suspect]
     Active Substance: PIRFENIDONE
     Indication: PULMONARY FIBROSIS
     Dosage: 1 TAB BY MOUTH 3 TIMES A DAY
     Route: 048
     Dates: start: 201703
  15. POTASSIUM CHLORIDE ERT [Concomitant]
  16. DICLOFENAC SODIUM. [Concomitant]
     Active Substance: DICLOFENAC SODIUM
  17. KETOCONAZOLE. [Concomitant]
     Active Substance: KETOCONAZOLE
  18. LEVOFLOXACIN. [Concomitant]
     Active Substance: LEVOFLOXACIN
  19. PREDNISONE. [Concomitant]
     Active Substance: PREDNISONE
  20. AMLODIPINE BESYLATE. [Concomitant]
     Active Substance: AMLODIPINE BESYLATE
  21. FINASTERIDE. [Concomitant]
     Active Substance: FINASTERIDE
  22. METOPROLOL TARTRATE. [Concomitant]
     Active Substance: METOPROLOL TARTRATE
  23. SERTRALINE HCL [Concomitant]
     Active Substance: SERTRALINE HYDROCHLORIDE
  24. TAMSULOSIN HYDROCHLORIDE. [Concomitant]
     Active Substance: TAMSULOSIN HYDROCHLORIDE
  25. FLUOROMETHOLONE. [Concomitant]
     Active Substance: FLUOROMETHOLONE
  26. BETAMETHASON [BETAMETHASONE] [Concomitant]
  27. LYRICA [Concomitant]
     Active Substance: PREGABALIN
  28. RESTASIS [Concomitant]
     Active Substance: CYCLOSPORINE
  29. VOLTAREN [DICLOFENAC] [Concomitant]
     Active Substance: DICLOFENAC SODIUM

REACTIONS (1)
  - Sunburn [Not Recovered/Not Resolved]
